FAERS Safety Report 7970878-3 (Version None)
Quarter: 2011Q4

REPORT INFORMATION
  Report Type: 
  Country: None (occurrence: None)
  Receive Date: 20111212
  Receipt Date: 20111202
  Transmission Date: 20120403
  Serious: Yes (Death)
  Sender: FDA-Public Use
  Company Number: LB-GLAXOSMITHKLINE-B0768347A

PATIENT
  Age: 70 Year
  Sex: Male

DRUGS (1)
  1. AVODART [Suspect]
     Indication: BENIGN PROSTATIC HYPERPLASIA
     Dosage: .5MG PER DAY
     Route: 065
     Dates: start: 20110204, end: 20110729

REACTIONS (1)
  - INTESTINAL INFARCTION [None]
